FAERS Safety Report 10413297 (Version 1)
Quarter: 2014Q3

REPORT INFORMATION
  Report Type: Spontaneous
  Country: CN (occurrence: CN)
  Receive Date: 20140827
  Receipt Date: 20140827
  Transmission Date: 20150326
  Serious: Yes (Hospitalization)
  Sender: FDA-Public Use
  Company Number: CN-PFIZER INC-2014234700

PATIENT
  Age: 40 Year
  Sex: Female
  Weight: 50 kg

DRUGS (2)
  1. CISPLATIN. [Concomitant]
     Active Substance: CISPLATIN
     Dosage: 80 MG, UNK
     Route: 051
  2. SUTENT [Suspect]
     Active Substance: SUNITINIB MALATE
     Indication: LUNG SQUAMOUS CELL CARCINOMA STAGE IV
     Dosage: 25 MG, 1X/DAY
     Route: 048
     Dates: start: 20130923, end: 20131105

REACTIONS (2)
  - Bone marrow failure [Recovering/Resolving]
  - Off label use [Unknown]

NARRATIVE: CASE EVENT DATE: 20131030
